FAERS Safety Report 6122799-9 (Version None)
Quarter: 2009Q1

REPORT INFORMATION
  Report Type: 
  Country: None (occurrence: None)
  Receive Date: 20090318
  Receipt Date: 20080904
  Transmission Date: 20090719
  Serious: No
  Sender: FDA-Public Use
  Company Number: US-AMGEN-KDL305805

PATIENT
  Sex: Female

DRUGS (3)
  1. NEULASTA [Suspect]
     Indication: CHEMOTHERAPY
     Dates: start: 20080101
  2. HERCEPTIN [Concomitant]
  3. NAVELBINE [Concomitant]

REACTIONS (9)
  - ABDOMINAL DISCOMFORT [None]
  - EYE PAIN [None]
  - FATIGUE [None]
  - HEADACHE [None]
  - LYMPHADENOPATHY [None]
  - MALAISE [None]
  - RED BLOOD CELL COUNT INCREASED [None]
  - SINUS HEADACHE [None]
  - TINNITUS [None]
